FAERS Safety Report 6552858-8 (Version None)
Quarter: 2010Q1

REPORT INFORMATION
  Report Type: 
  Country: None (occurrence: None)
  Receive Date: 20100122
  Receipt Date: 20100112
  Transmission Date: 20100710
  Serious: Yes (Hospitalization)
  Sender: FDA-Public Use
  Company Number: A-CH2010-33186

PATIENT
  Age: 68 Year
  Sex: Female
  Weight: 53 kg

DRUGS (8)
  1. TRACLEER [Suspect]
     Indication: SKIN ULCER
     Dosage: 125 MG, BID, ORAL
     Route: 048
     Dates: start: 20090909, end: 20091006
  2. TRACLEER [Suspect]
     Indication: SKIN ULCER
     Dosage: 125 MG, BID, ORAL
     Route: 048
     Dates: start: 20091007, end: 20091119
  3. TRACLEER [Suspect]
     Indication: SKIN ULCER
     Dosage: 125 MG, BID, ORAL
     Route: 048
     Dates: start: 20091128
  4. MEDROL [Concomitant]
  5. AGAPURIN (PENTOXIFYLLINE) [Concomitant]
  6. VASLIP (SIMVASTATIN) [Concomitant]
  7. ISOPTIN [Concomitant]
  8. RAMIPRIL [Concomitant]

REACTIONS (5)
  - HYPERTENSION [None]
  - OEDEMA PERIPHERAL [None]
  - REFUSAL OF TREATMENT BY PATIENT [None]
  - RETINAL ARTERY OCCLUSION [None]
  - VOMITING [None]
